FAERS Safety Report 11167473 (Version 12)
Quarter: 2019Q3

REPORT INFORMATION
  Report Type: Spontaneous
  Country: US (occurrence: US)
  Receive Date: 20150605
  Receipt Date: 20190726
  Transmission Date: 20191004
  Serious: Yes (Hospitalization, Other)
  Sender: FDA-Public Use
  Company Number: US-PFIZER INC-2015188327

PATIENT
  Age: 45 Year
  Sex: Female
  Weight: 51 kg

DRUGS (36)
  1. REVATIO [Suspect]
     Active Substance: SILDENAFIL CITRATE
     Indication: PULMONARY ARTERIAL HYPERTENSION
     Dosage: 20 MG, 3X/DAY
     Route: 048
  2. CELLCEPT [Concomitant]
     Active Substance: MYCOPHENOLATE MOFETIL\MYCOPHENOLATE MOFETIL HYDROCHLORIDE
     Indication: SYSTEMIC LUPUS ERYTHEMATOSUS
     Dosage: 500 MG, 2X/DAY
     Route: 048
  3. CAUMADIN [Concomitant]
     Active Substance: WARFARIN SODIUM
     Dosage: 10 MG, DAILY
     Route: 048
  4. DESYREL [Concomitant]
     Active Substance: TRAZODONE HYDROCHLORIDE
     Dosage: 100 MG, 1X/DAY (AT BED TIME)
     Route: 048
  5. OSCAL [Concomitant]
     Active Substance: CALCIUM CARBONATE
     Dosage: 1250 MG, 2X/DAY, (OSCAL 500 MG ELEM. CA)
     Route: 048
  6. DELTASONE [Concomitant]
     Active Substance: PREDNISONE
     Indication: SYSTEMIC LUPUS ERYTHEMATOSUS
     Dosage: 3 MG, 1X/DAY
     Dates: start: 1989
  7. FOLVITE [Concomitant]
     Active Substance: FOLIC ACID
     Dosage: 3 MG DAILY, (1 MG TABLET, TAKE 3 TABLETS BY MOUTH DAILY) MOUTH DAILY)
     Route: 048
  8. COUMADIN [Concomitant]
     Active Substance: WARFARIN SODIUM
     Dosage: 10 MG, DAILY
     Route: 048
  9. REVATIO [Suspect]
     Active Substance: SILDENAFIL CITRATE
     Dosage: 100 MG, 3X/DAY
     Dates: start: 2003
  10. LETAIRIS [Concomitant]
     Active Substance: AMBRISENTAN
     Indication: PULMONARY ARTERIAL HYPERTENSION
     Dosage: 10 MG, 1X/DAY
     Route: 048
  11. REVATIO [Suspect]
     Active Substance: SILDENAFIL CITRATE
     Indication: PULMONARY HYPERTENSION
     Dosage: 100 MG, 3X/DAY (20 MG TABLET, TAKE 5 TABLETS PO TID)
     Route: 048
     Dates: start: 2001
  12. CAUMADIN [Concomitant]
     Active Substance: WARFARIN SODIUM
     Dosage: 15 OR 20 MG AS DIRECTED DAILY BY ^ACC^
  13. LYRICA [Concomitant]
     Active Substance: PREGABALIN
     Dosage: 25 MG, 3X/DAY
     Route: 048
  14. DELTASONE [Concomitant]
     Active Substance: PREDNISONE
     Dosage: 4 MG, DAILY
     Route: 048
  15. ROXICODONE [Concomitant]
     Active Substance: OXYCODONE HYDROCHLORIDE
     Indication: PAIN
     Dosage: UNK, AS NEEDED (TAKE 1-2 TABLETS)
     Route: 048
  16. DELTASONE [DEXAMETHASONE] [Concomitant]
     Dosage: 3 MG, DAILY
     Route: 048
  17. LUMINAL [Concomitant]
     Active Substance: PHENOBARBITAL SODIUM
     Dosage: 32.4 MG (EVERY MORNING) AND AT 64.8 MG (AT BED TIME)
     Route: 048
  18. ARANESP [Concomitant]
     Active Substance: DARBEPOETIN ALFA
     Indication: ANAEMIA
     Dosage: 40 UG, AS NEEDED 0.4 ML (40 MCG) SUBCUTANEOUS EVERY 28 DAYS AS NEEDED
     Route: 058
  19. LISINOPRIL. [Concomitant]
     Active Substance: LISINOPRIL
     Dosage: 2.5 MG, DAILY
     Route: 048
  20. FOSAMAX [Concomitant]
     Active Substance: ALENDRONATE SODIUM
     Dosage: 35 MG, WEEKLY, (EVERY 7 DAYS)
     Route: 048
  21. DESOWEN [Concomitant]
     Active Substance: DESONIDE
     Dosage: UNK UNK, 2X/DAY
     Route: 061
  22. DILAUDID [Concomitant]
     Active Substance: HYDROMORPHONE HYDROCHLORIDE
     Indication: PAIN
     Dosage: 2 MG, AS NEEDED [EVERY 6 HOURS AS NEEDED FOR PAIN MAXIMUM 4 TABLET(S) PER DAY]
     Route: 048
  23. MYCOPHENOLATE [Concomitant]
     Active Substance: MYCOPHENOLIC ACID
     Dosage: 500 MG, 2X/DAY
     Route: 048
  24. PHENOBARB [Concomitant]
     Active Substance: PHENOBARBITAL SODIUM
     Dosage: UNK
     Dates: start: 1990
  25. VITAMIN D [Concomitant]
     Active Substance: VITAMIN D NOS
     Dosage: 400 IU, DAILY
     Route: 048
  26. IRON [Concomitant]
     Active Substance: IRON
     Dosage: 325 MG, DAILY, (65 FE)
     Route: 048
  27. PLAQUENIL [Concomitant]
     Active Substance: HYDROXYCHLOROQUINE SULFATE
     Indication: SYSTEMIC LUPUS ERYTHEMATOSUS
     Dosage: 500 MG, 2X/DAY
     Route: 048
  28. PLAQUENIL [Concomitant]
     Active Substance: HYDROXYCHLOROQUINE SULFATE
     Dosage: 200 MG, 2X/DAY
     Route: 048
  29. PLAQUENIL [Concomitant]
     Active Substance: HYDROXYCHLOROQUINE SULFATE
     Dosage: 200 MG, DAILY
     Route: 048
  30. LASIX [Concomitant]
     Active Substance: FUROSEMIDE
     Dosage: 20 MG, DAILY, (EVERY DAY)
     Route: 048
  31. DELTASONE [DEXAMETHASONE] [Concomitant]
     Dosage: 4 MG, DAILY
     Route: 048
  32. KLONOPIN [Concomitant]
     Active Substance: CLONAZEPAM
     Dosage: 1 MG, 1X/DAY (AT BED TIME)
     Route: 048
  33. FERROUS SULFATE. [Concomitant]
     Active Substance: FERROUS SULFATE
     Dosage: 56 MG, DAILY
     Route: 048
  34. VIBRAMYCIN [Concomitant]
     Active Substance: DOXYCYCLINE
     Dosage: 100 MG, 2X/DAY
     Route: 048
  35. XYLOCAINE [Concomitant]
     Active Substance: LIDOCAINE HYDROCHLORIDE
     Indication: PAIN
     Dosage: 5 %, AS NEEDED
     Route: 061
  36. PERCOCET [Concomitant]
     Active Substance: ACETAMINOPHEN\OXYCODONE HYDROCHLORIDE
     Indication: PAIN
     Dosage: UNK, AS NEEDED [OXYCODONE 5 MG]/[ACETAMINOPHEN 325 MG]/TAKE 1-2 TABLETS BY MOUTH EVERY 4 HOURS

REACTIONS (7)
  - Osteonecrosis [Recovered/Resolved]
  - Disease progression [Recovered/Resolved]
  - Therapeutic product effect incomplete [Unknown]
  - Prescribed overdose [Unknown]
  - Fatigue [Unknown]
  - Dyspnoea [Unknown]
  - Loss of personal independence in daily activities [Unknown]

NARRATIVE: CASE EVENT DATE: 2001
